FAERS Safety Report 11562070 (Version 1)
Quarter: 2015Q3

REPORT INFORMATION
  Report Type: Spontaneous
  Country: US (occurrence: US)
  Receive Date: 20150916
  Receipt Date: 20150916
  Transmission Date: 20151125
  Serious: No
  Sender: FDA-Public Use
  Company Number: US-ELI_LILLY_AND_COMPANY-US200811004594

PATIENT
  Age: 62 Year
  Sex: Female

DRUGS (11)
  1. CLARITIN [Concomitant]
     Active Substance: LORATADINE
     Dosage: UNK, AS NEEDED
     Route: 048
  2. XANAX [Concomitant]
     Active Substance: ALPRAZOLAM
     Dosage: 0.5 MG, DAILY (1/D)
  3. PROVENTIL /00139501/ [Concomitant]
     Indication: ALLERGY TO CHEMICALS
     Dosage: UNK, AS NEEDED
  4. FORTEO [Suspect]
     Active Substance: TERIPARATIDE
     Dosage: 20 UG, QOD
  5. ALCOHOL. [Concomitant]
     Active Substance: ALCOHOL
  6. VITAMIN D [Concomitant]
     Active Substance: CHOLECALCIFEROL
     Dosage: 50000 MIU, 2/W
  7. TRAZODONE /00447702/ [Concomitant]
     Active Substance: TRAZODONE HYDROCHLORIDE
     Dosage: 50 MG, EACH EVENING
  8. EPIPEN /00003901/ [Concomitant]
     Indication: ALLERGY TO CHEMICALS
     Dosage: UNK, AS NEEDED
  9. FORTEO [Suspect]
     Active Substance: TERIPARATIDE
     Indication: OSTEOPOROSIS
     Dosage: 20 UG, DAILY (1/D)
     Dates: start: 20081117
  10. COZAAR [Concomitant]
     Active Substance: LOSARTAN POTASSIUM
     Dosage: 25 MG, DAILY (1/D)
  11. XANAX [Concomitant]
     Active Substance: ALPRAZOLAM
     Indication: ANXIETY
     Dosage: 1 MG, AS NEEDED

REACTIONS (10)
  - Nausea [Recovering/Resolving]
  - Headache [Not Recovered/Not Resolved]
  - Nervousness [Unknown]
  - Malaise [Not Recovered/Not Resolved]
  - Blood pressure increased [Not Recovered/Not Resolved]
  - Pain in extremity [Unknown]
  - Insomnia [Recovering/Resolving]
  - Spinal pain [Recovering/Resolving]
  - Anxiety [Unknown]
  - Fall [Not Recovered/Not Resolved]

NARRATIVE: CASE EVENT DATE: 20081117
